FAERS Safety Report 11358777 (Version 1)
Quarter: 2015Q3

REPORT INFORMATION
  Report Type: Spontaneous
  Country: US (occurrence: None)
  Receive Date: 20150806
  Receipt Date: 20150806
  Transmission Date: 20151125
  Serious: Yes (Other)
  Sender: FDA-Public Use
  Company Number: None

PATIENT
  Age: 50 Year
  Sex: Male

DRUGS (3)
  1. TAXOTERE [Suspect]
     Active Substance: DOCETAXEL
  2. TAXOTERE [Suspect]
     Active Substance: DOCETAXEL
     Route: 042
  3. TAXOTERE [Suspect]
     Active Substance: DOCETAXEL

REACTIONS (2)
  - Dyspnoea [None]
  - Loss of consciousness [None]
